FAERS Safety Report 6984035-0 (Version None)
Quarter: 2010Q3

REPORT INFORMATION
  Report Type: 
  Country: None (occurrence: None)
  Receive Date: 20100915
  Receipt Date: 20100413
  Transmission Date: 20110219
  Serious: No
  Sender: FDA-Public Use
  Company Number: US-ALLERGAN-1004797US

PATIENT
  Age: 27 Year
  Sex: Female

DRUGS (1)
  1. AZELEX [Suspect]
     Indication: ACNE
     Dosage: UNK
     Route: 061
     Dates: start: 20100322

REACTIONS (2)
  - ACNE [None]
  - DRUG INEFFECTIVE [None]
